FAERS Safety Report 10052174 (Version 1)
Quarter: 2014Q2

REPORT INFORMATION
  Report Type: Spontaneous
  Country: US (occurrence: US)
  Receive Date: 20140402
  Receipt Date: 20140402
  Transmission Date: 20141212
  Serious: No
  Sender: FDA-Public Use
  Company Number: US-009507513-1404USA000003

PATIENT
  Age: 29 Year
  Sex: Female
  Weight: 43.54 kg

DRUGS (1)
  1. NEXPLANON [Suspect]
     Indication: CONTRACEPTION
     Dosage: EVERY THREE YEARS, 1 ROD
     Route: 059
     Dates: start: 20131210

REACTIONS (1)
  - Menorrhagia [Unknown]
